FAERS Safety Report 15864695 (Version 1)
Quarter: 2019Q1

REPORT INFORMATION
  Report Type: Spontaneous
  Country: US (occurrence: US)
  Receive Date: 20190124
  Receipt Date: 20190124
  Transmission Date: 20190417
  Serious: No
  Sender: FDA-Public Use
  Company Number: US-ALLERGAN-1772374US

PATIENT
  Age: 71 Year
  Sex: Female

DRUGS (4)
  1. BROMFENAC [Concomitant]
     Active Substance: BROMFENAC SODIUM
     Dosage: 1 GTT, QD
     Route: 047
  2. PREDNISOLONE ACETATE, 1.0% [Suspect]
     Active Substance: PREDNISOLONE ACETATE
     Indication: EYE OPERATION
     Dosage: 1 GTT, QID
     Route: 047
     Dates: start: 20171011
  3. VALTREX [Concomitant]
     Active Substance: VALACYCLOVIR HYDROCHLORIDE
     Indication: ORAL HERPES
     Dosage: 500 MG, BID
     Route: 048
  4. VIGAMOX [Concomitant]
     Active Substance: MOXIFLOXACIN HYDROCHLORIDE
     Dosage: 1 GTT, QID
     Route: 047

REACTIONS (2)
  - Accidental exposure to product [Unknown]
  - Product dropper issue [Unknown]

NARRATIVE: CASE EVENT DATE: 20171201
